FAERS Safety Report 9186315 (Version 1)
Quarter: 2013Q1

REPORT INFORMATION
  Report Type: Spontaneous
  Country: US (occurrence: None)
  Receive Date: 20130321
  Receipt Date: 20130321
  Transmission Date: 20140127
  Serious: Yes (Other)
  Sender: FDA-Public Use
  Company Number: 1640016

PATIENT
  Sex: 0

DRUGS (11)
  1. DIGOXIN [Suspect]
     Indication: PRODUCT USED FOR UNKNOWN INDICATION
  2. DIGOXIN [Suspect]
     Indication: PRODUCT USED FOR UNKNOWN INDICATION
  3. DIGOXIN [Suspect]
  4. DIGOXIN [Suspect]
  5. DIGOXIN [Suspect]
  6. DIGOXIN [Suspect]
  7. DOBUTAMINE HYDROCHLORIDE [Suspect]
  8. HEPARIN SODIUM [Suspect]
  9. VANCOMYCIN HYDROCHLORIDE [Suspect]
  10. METOLAZONE [Suspect]
  11. SPIRONOLACTONE [Suspect]

REACTIONS (1)
  - Allergic myocarditis [None]
